FAERS Safety Report 6507274-1 (Version None)
Quarter: 2009Q4

REPORT INFORMATION
  Report Type: 
  Country: None (occurrence: None)
  Receive Date: 20091221
  Receipt Date: 20091206
  Transmission Date: 20100525
  Serious: Yes (Hospitalization)
  Sender: FDA-Public Use
  Company Number: CO-BAXTER-2009BH019544

PATIENT
  Sex: Male

DRUGS (1)
  1. RECOMBINATE [Suspect]
     Indication: FACTOR VIII DEFICIENCY
     Route: 042
     Dates: start: 20080801, end: 20090601

REACTIONS (7)
  - CONDUCT DISORDER [None]
  - CONVULSION [None]
  - HEADACHE [None]
  - INCOHERENT [None]
  - PYREXIA [None]
  - SPEECH DISORDER [None]
  - VOMITING [None]
